FAERS Safety Report 5828547-1 (Version None)
Quarter: 2008Q3

REPORT INFORMATION
  Report Type: 
  Country: None (occurrence: None)
  Receive Date: 20080729
  Receipt Date: 20080729
  Transmission Date: 20090109
  Serious: Yes (Hospitalization)
  Sender: FDA-Public Use
  Company Number: None

PATIENT
  Age: 50 Year
  Sex: Male
  Weight: 90.7194 kg

DRUGS (1)
  1. TRAMADOL HCL [Suspect]
     Indication: SPINAL OSTEOARTHRITIS
     Dosage: ONE TABLET  EVERY 4 HOURS  PO
     Route: 048
     Dates: start: 20070610, end: 20080722

REACTIONS (2)
  - GRAND MAL CONVULSION [None]
  - RESPIRATORY DISTRESS [None]
